FAERS Safety Report 8176920-1 (Version None)
Quarter: 2012Q1

REPORT INFORMATION
  Report Type: 
  Country: None (occurrence: None)
  Receive Date: 20120301
  Receipt Date: 20120217
  Transmission Date: 20120608
  Serious: Yes (Hospitalization)
  Sender: FDA-Public Use
  Company Number: US-UCBSA-051583

PATIENT
  Age: 26 Year
  Sex: Female
  Weight: 46.9 kg

DRUGS (20)
  1. ZOLOFT [Concomitant]
     Indication: DEPRESSION
     Route: 048
  2. CIMZIA [Suspect]
     Indication: CROHN'S DISEASE
     Route: 058
     Dates: start: 20110110, end: 20120124
  3. LOMOTIL [Concomitant]
     Indication: CROHN'S DISEASE
     Dosage: 2.5-0.025 MG, 2 TID
     Route: 048
  4. OPIUM [Concomitant]
     Indication: PAIN
     Dosage: 10 MG/ML, 0.6 MI
  5. PERCOCET [Concomitant]
     Indication: PAIN MANAGEMENT
     Dosage: 5-325, 1-2 TABS
     Route: 048
  6. CIMZIA [Suspect]
     Dosage: 1 DOSE
     Route: 058
     Dates: start: 20090101, end: 20090101
  7. NEXIUM [Concomitant]
     Indication: GASTROOESOPHAGEAL REFLUX DISEASE
     Route: 048
  8. LEVAQUIN [Concomitant]
     Dates: start: 20070101, end: 20080101
  9. APRISO [Concomitant]
     Indication: CROHN'S DISEASE
     Route: 048
     Dates: start: 20090901
  10. APRISO [Concomitant]
     Dosage: 1000 TID
  11. RIFAXIMIN [Concomitant]
     Dates: start: 20090101, end: 20090101
  12. XANAX [Concomitant]
     Indication: ANXIETY
     Route: 048
  13. XANAX [Concomitant]
     Dosage: 0.5 ONCE NIGHTLY
  14. APRISO [Concomitant]
     Dosage: 375X4TID
  15. RIFAXIMIN [Concomitant]
     Indication: CROHN'S DISEASE
     Route: 048
  16. LEVAQUIN [Concomitant]
     Indication: CROHN'S DISEASE
     Dosage: 500 DAILY
  17. CANASA [Concomitant]
     Indication: CROHN'S DISEASE
  18. AMBIEN [Concomitant]
     Indication: SLEEP DISORDER
     Route: 048
  19. AMOXICILLIN [Concomitant]
     Indication: CROHN'S DISEASE
     Route: 048
  20. FLORASTOR [Concomitant]
     Indication: CROHN'S DISEASE

REACTIONS (1)
  - INFLUENZA [None]
